FAERS Safety Report 15001446 (Version 1)
Quarter: 2018Q2

REPORT INFORMATION
  Report Type: Spontaneous
  Country: US (occurrence: US)
  Receive Date: 20180612
  Receipt Date: 20180612
  Transmission Date: 20180711
  Serious: Yes (Death, Other)
  Sender: FDA-Public Use
  Company Number: US-ASTELLAS-2018US026182

PATIENT
  Age: 80 Year
  Sex: Female

DRUGS (1)
  1. LEXISCAN [Suspect]
     Active Substance: REGADENOSON
     Indication: CARDIAC STRESS TEST
     Dosage: 5 ML/0.4 MG UNKNOWN FREQ.
     Route: 042
     Dates: start: 20180524, end: 20180524

REACTIONS (6)
  - Death [Fatal]
  - Dyspnoea [Unknown]
  - Bradycardia [Unknown]
  - Cardiac arrest [Unknown]
  - Coronary artery disease [Unknown]
  - Vomiting [Recovering/Resolving]

NARRATIVE: CASE EVENT DATE: 20180524
